FAERS Safety Report 7801309-1 (Version None)
Quarter: 2011Q4

REPORT INFORMATION
  Report Type: 
  Country: None (occurrence: None)
  Receive Date: 20111005
  Receipt Date: 20110926
  Transmission Date: 20120403
  Serious: Yes (Hospitalization, Other)
  Sender: FDA-Public Use
  Company Number: AUR-APL-2011-05230

PATIENT
  Age: 25 Year
  Sex: Male

DRUGS (3)
  1. DIVALPROEX SODIUM [Suspect]
     Indication: PRODUCT USED FOR UNKNOWN INDICATION
     Dosage: 2000 MG (1000 MG, 2 IN 1 D),
  2. QUETIAPINE FUMARATE [Suspect]
     Indication: PRODUCT USED FOR UNKNOWN INDICATION
     Dosage: (MG, 1 D),
  3. RISPERIDONE [Suspect]
     Indication: PRODUCT USED FOR UNKNOWN INDICATION
     Dosage: 2 MG (1 MG, 2 IN 1 D),

REACTIONS (6)
  - HYPERAMMONAEMIA [None]
  - DRUG INTERACTION [None]
  - THOUGHT BLOCKING [None]
  - PSYCHOTIC DISORDER [None]
  - DISORIENTATION [None]
  - CARNITINE DEFICIENCY [None]
